FAERS Safety Report 8374071-4 (Version None)
Quarter: 2012Q2

REPORT INFORMATION
  Report Type: 
  Country: None (occurrence: None)
  Receive Date: 20120521
  Receipt Date: 20120515
  Transmission Date: 20120825
  Serious: Yes (Other)
  Sender: FDA-Public Use
  Company Number: CA-ABBOTT-12P-028-0934276-00

PATIENT
  Sex: Male
  Weight: 83.99 kg

DRUGS (1)
  1. HUMIRA [Suspect]
     Indication: CROHN'S DISEASE
     Route: 058
     Dates: start: 20111007, end: 20120323

REACTIONS (6)
  - INTESTINAL OBSTRUCTION [None]
  - HYPOPHAGIA [None]
  - DIABETES MELLITUS [None]
  - PAIN [None]
  - VOMITING [None]
  - INTESTINAL STENOSIS [None]
